FAERS Safety Report 6676446-8 (Version None)
Quarter: 2010Q2

REPORT INFORMATION
  Report Type: 
  Country: None (occurrence: None)
  Receive Date: 20100412
  Receipt Date: 20100401
  Transmission Date: 20101027
  Serious: Yes (Hospitalization, Other)
  Sender: FDA-Public Use
  Company Number: PHHY2010US18474

PATIENT
  Sex: Male

DRUGS (1)
  1. EXJADE [Suspect]
     Indication: TRANSFUSION
     Dosage: 1250 MG DAILY
     Route: 048
     Dates: start: 20090928

REACTIONS (1)
  - UMBILICAL HERNIA REPAIR [None]
